FAERS Safety Report 17542210 (Version 19)
Quarter: 2022Q1

REPORT INFORMATION
  Report Type: Spontaneous
  Country: CA (occurrence: CA)
  Receive Date: 20200314
  Receipt Date: 20220325
  Transmission Date: 20220423
  Serious: Yes (Hospitalization, Other)
  Sender: FDA-Public Use
  Company Number: CA-CELLTRION INC.-2018CA020139

PATIENT

DRUGS (41)
  1. INFLECTRA [Suspect]
     Active Substance: INFLIXIMAB-DYYB
     Indication: Ankylosing spondylitis
     Dosage: 600 MG, AT 0, 2, 6, THEN EVERY 8 WEEKS
     Route: 042
     Dates: start: 20160713, end: 20170209
  2. INFLECTRA [Suspect]
     Active Substance: INFLIXIMAB-DYYB
     Dosage: 650 MG, EVERY 6 WEEKS
     Route: 042
     Dates: start: 20170321
  3. INFLECTRA [Suspect]
     Active Substance: INFLIXIMAB-DYYB
     Dosage: 650 MG, EVERY 6 WEEKS
     Route: 042
     Dates: start: 20180329
  4. INFLECTRA [Suspect]
     Active Substance: INFLIXIMAB-DYYB
     Dosage: 650 MG, EVERY 6 WEEKS
     Route: 042
     Dates: start: 20180511
  5. INFLECTRA [Suspect]
     Active Substance: INFLIXIMAB-DYYB
     Dosage: 650 MG, EVERY 6 WEEKS
     Route: 042
     Dates: start: 20180621
  6. INFLECTRA [Suspect]
     Active Substance: INFLIXIMAB-DYYB
     Dosage: 650 MG, EVERY 6 WEEKS
     Route: 042
     Dates: start: 20180807
  7. INFLECTRA [Suspect]
     Active Substance: INFLIXIMAB-DYYB
     Dosage: 650 MG, EVERY 6 WEEKS
     Route: 042
     Dates: start: 20180912
  8. INFLECTRA [Suspect]
     Active Substance: INFLIXIMAB-DYYB
     Dosage: 650 MG, EVERY 6 WEEKS
     Route: 042
     Dates: start: 20181024
  9. INFLECTRA [Suspect]
     Active Substance: INFLIXIMAB-DYYB
     Dosage: 650 MG, EVERY 6 WEEKS
     Route: 042
     Dates: start: 20181205
  10. INFLECTRA [Suspect]
     Active Substance: INFLIXIMAB-DYYB
     Dosage: 650 MG, EVERY 6 WEEKS
     Route: 042
     Dates: start: 20190115
  11. INFLECTRA [Suspect]
     Active Substance: INFLIXIMAB-DYYB
     Dosage: 650 MG, EVERY 6 WEEKS
     Route: 042
     Dates: start: 20190226
  12. INFLECTRA [Suspect]
     Active Substance: INFLIXIMAB-DYYB
     Dosage: 650 MG, EVERY 6 WEEKS
     Route: 042
     Dates: start: 20190409
  13. INFLECTRA [Suspect]
     Active Substance: INFLIXIMAB-DYYB
     Dosage: 650 MG, EVERY 6 WEEKS
     Route: 042
     Dates: start: 20190522
  14. INFLECTRA [Suspect]
     Active Substance: INFLIXIMAB-DYYB
     Dosage: 650 MG, EVERY 6 WEEKS
     Route: 042
     Dates: start: 20190704
  15. INFLECTRA [Suspect]
     Active Substance: INFLIXIMAB-DYYB
     Dosage: 650 MG, EVERY 6 WEEKS
     Route: 042
     Dates: start: 20190813
  16. INFLECTRA [Suspect]
     Active Substance: INFLIXIMAB-DYYB
     Dosage: 650 MG, EVERY 6 WEEKS
     Route: 042
     Dates: start: 20200131
  17. INFLECTRA [Suspect]
     Active Substance: INFLIXIMAB-DYYB
     Dosage: 650 MG, EVERY 6 WEEKS
     Route: 042
     Dates: start: 20200313
  18. INFLECTRA [Suspect]
     Active Substance: INFLIXIMAB-DYYB
     Dosage: 650 MG, EVERY 6 WEEKS
     Route: 042
     Dates: start: 20200424
  19. INFLECTRA [Suspect]
     Active Substance: INFLIXIMAB-DYYB
     Dosage: 650 MG, EVERY 6 WEEKS
     Route: 042
     Dates: start: 20200605
  20. INFLECTRA [Suspect]
     Active Substance: INFLIXIMAB-DYYB
     Dosage: 650 MG, EVERY 6 WEEKS
     Route: 042
     Dates: start: 20200716
  21. INFLECTRA [Suspect]
     Active Substance: INFLIXIMAB-DYYB
     Dosage: 675 MG
     Route: 042
     Dates: start: 20201013
  22. INFLECTRA [Suspect]
     Active Substance: INFLIXIMAB-DYYB
     Dosage: 650MG, EVERY 6 WEEKS
     Route: 042
     Dates: start: 20201202
  23. INFLECTRA [Suspect]
     Active Substance: INFLIXIMAB-DYYB
     Dosage: 650MG, EVERY 6 WEEKS
     Route: 042
     Dates: start: 20210108
  24. INFLECTRA [Suspect]
     Active Substance: INFLIXIMAB-DYYB
     Dosage: 650MG, EVERY 6 WEEKS
     Route: 042
     Dates: start: 20210215
  25. INFLECTRA [Suspect]
     Active Substance: INFLIXIMAB-DYYB
     Dosage: 650MG, EVERY 6 WEEKS
     Route: 042
     Dates: start: 20210331
  26. INFLECTRA [Suspect]
     Active Substance: INFLIXIMAB-DYYB
     Dosage: 650MG, EVERY 6 WEEKS
     Route: 042
     Dates: start: 20210518
  27. INFLECTRA [Suspect]
     Active Substance: INFLIXIMAB-DYYB
     Dosage: 650MG, EVERY 6 WEEKS
     Route: 042
     Dates: start: 20210623
  28. INFLECTRA [Suspect]
     Active Substance: INFLIXIMAB-DYYB
     Dosage: 650 MG, EVERY 6 WEEKS
     Route: 042
     Dates: start: 20210803
  29. INFLECTRA [Suspect]
     Active Substance: INFLIXIMAB-DYYB
     Dosage: 650 MG, EVERY 6 WEEKS
     Route: 042
     Dates: start: 20210921
  30. INFLECTRA [Suspect]
     Active Substance: INFLIXIMAB-DYYB
     Dosage: 650 MG, EVERY 6 WEEKS
     Route: 042
     Dates: start: 20220131
  31. INFLECTRA [Suspect]
     Active Substance: INFLIXIMAB-DYYB
     Dosage: 650 MG, EVERY 6 WEEKS
     Route: 042
     Dates: start: 20220314
  32. BUTRANS [Concomitant]
     Active Substance: BUPRENORPHINE
     Dosage: 10 UG, UNK
     Route: 062
  33. CYCLOBENZAPRINE [Concomitant]
     Active Substance: CYCLOBENZAPRINE
     Dosage: 10 MG, ONCE DAILY
     Route: 048
  34. HUMIRA [Concomitant]
     Active Substance: ADALIMUMAB
     Dosage: UNKNOWN EVERY  2 WEEKS
  35. HUMIRA [Concomitant]
     Active Substance: ADALIMUMAB
     Dosage: 1 DF [EVERY 2 WEEKS]
  36. IRBESARTAN [Concomitant]
     Active Substance: IRBESARTAN
     Dosage: 150 MG, DAILY
  37. PANTOPRAZOLE [Concomitant]
     Active Substance: PANTOPRAZOLE
     Dosage: UNK, ONCE DAILY
     Route: 048
  38. PANTOPRAZOLE [Concomitant]
     Active Substance: PANTOPRAZOLE
     Dosage: 1 DF, 1X/DAY [ONCE DAILY]
     Route: 048
  39. MORPHINE SULFATE [Concomitant]
     Active Substance: MORPHINE SULFATE
     Dosage: 5 MG, AS NEEDED
     Route: 048
  40. VENLAFAXINE [Concomitant]
     Active Substance: VENLAFAXINE HYDROCHLORIDE
     Dosage: 225 MG, DAILY
     Route: 048
  41. ELIQUIS [Concomitant]
     Active Substance: APIXABAN
     Indication: Anticoagulant therapy
     Dosage: 5 MG
     Route: 048
     Dates: start: 202003

REACTIONS (13)
  - Pulmonary embolism [Recovering/Resolving]
  - COVID-19 [Unknown]
  - Hypertension [Not Recovered/Not Resolved]
  - Weight decreased [Recovered/Resolved]
  - Spinal osteoarthritis [Not Recovered/Not Resolved]
  - Back disorder [Not Recovered/Not Resolved]
  - Sleep disorder [Not Recovered/Not Resolved]
  - Arthralgia [Unknown]
  - Body temperature decreased [Unknown]
  - Loss of personal independence in daily activities [Unknown]
  - Off label use [Unknown]
  - Therapeutic product effect incomplete [Not Recovered/Not Resolved]
  - Intentional product use issue [Unknown]

NARRATIVE: CASE EVENT DATE: 20180511
